FAERS Safety Report 7545943-5 (Version None)
Quarter: 2011Q2

REPORT INFORMATION
  Report Type: 
  Country: None (occurrence: None)
  Receive Date: 20110614
  Receipt Date: 20110601
  Transmission Date: 20111010
  Serious: Yes (Hospitalization, Other)
  Sender: FDA-Public Use
  Company Number: PHHY2011CA32742

PATIENT
  Sex: Male

DRUGS (1)
  1. SANDOSTATIN LAR [Suspect]
     Indication: NEUROENDOCRINE TUMOUR
     Dosage: 40 MG, QMO
     Route: 030
     Dates: start: 20090818

REACTIONS (9)
  - NEOPLASM MALIGNANT [None]
  - DIARRHOEA [None]
  - HEART RATE INCREASED [None]
  - MALAISE [None]
  - BLOOD POTASSIUM DECREASED [None]
  - NAUSEA [None]
  - ASTHENIA [None]
  - BLOOD PRESSURE SYSTOLIC INCREASED [None]
  - PYREXIA [None]
